FAERS Safety Report 8078946-5 (Version None)
Quarter: 2012Q1

REPORT INFORMATION
  Report Type: 
  Country: None (occurrence: None)
  Receive Date: 20120128
  Receipt Date: 20110425
  Transmission Date: 20120608
  Serious: No
  Sender: FDA-Public Use
  Company Number: US-ABBOTT-11P-163-0721641-00

PATIENT
  Age: 54 Year
  Sex: Female

DRUGS (3)
  1. TOPROL-XL [Concomitant]
     Indication: CARDIAC DISORDER
  2. HUMIRA [Suspect]
     Indication: PSORIASIS
     Route: 058
     Dates: start: 20101001, end: 20110412
  3. TOPROL-XL [Concomitant]
     Indication: ATRIAL TACHYCARDIA
     Dates: start: 20050101

REACTIONS (2)
  - DRUG DOSE OMISSION [None]
  - PSORIASIS [None]
